FAERS Safety Report 8090851-7 (Version None)
Quarter: 2012Q1

REPORT INFORMATION
  Report Type: 
  Country: None (occurrence: None)
  Receive Date: 20120131
  Receipt Date: 20120120
  Transmission Date: 20120608
  Serious: Yes (Other)
  Sender: FDA-Public Use
  Company Number: US-JNJFOC-20120110064

PATIENT
  Age: 64 Year
  Sex: Male

DRUGS (4)
  1. REMICADE [Suspect]
     Indication: COLITIS ULCERATIVE
     Route: 042
  2. PREDNISONE TAB [Suspect]
     Indication: PROPHYLAXIS
     Route: 065
  3. REMICADE [Suspect]
     Route: 042
  4. REMICADE [Suspect]
     Dosage: RECEIVED 6 INFUSIONS WITH THE DOSE OF 10 MG/KG
     Route: 042

REACTIONS (3)
  - RED MAN SYNDROME [None]
  - DRUG INEFFECTIVE [None]
  - DIABETES MELLITUS [None]
